FAERS Safety Report 18517325 (Version 2)
Quarter: 2021Q1

REPORT INFORMATION
  Report Type: Spontaneous
  Country: CA (occurrence: CA)
  Receive Date: 20201118
  Receipt Date: 20210316
  Transmission Date: 20210419
  Serious: Yes (Other)
  Sender: FDA-Public Use
  Company Number: CA-PFIZER INC-2020452888

PATIENT
  Age: 78 Year
  Sex: Female

DRUGS (15)
  1. RUXIENCE [Suspect]
     Active Substance: RITUXIMAB-PVVR
     Indication: RHEUMATOID ARTHRITIS
     Dosage: 1000 MG DAY 1 AND 15
     Dates: start: 20201028
  2. HYDROXYCHLOROQUINE [Concomitant]
     Active Substance: HYDROXYCHLOROQUINE
     Dosage: 2 TABS, 1X/DAY
     Route: 048
  3. ASA [Concomitant]
     Active Substance: ASPIRIN
     Dosage: 81 MG, 1X/DAY
     Route: 048
  4. OMEPRAZOLE. [Concomitant]
     Active Substance: OMEPRAZOLE
     Dosage: 20MG, DAILY
     Route: 048
  5. RUXIENCE [Suspect]
     Active Substance: RITUXIMAB-PVVR
     Dosage: 1000 MG DAY 1 AND 15
     Dates: start: 20201112
  6. GLIPIZIDE. [Concomitant]
     Active Substance: GLIPIZIDE
     Dosage: 30 MG, ALTERNATE DAY
  7. ASA [Concomitant]
     Active Substance: ASPIRIN
     Dosage: UNK UNK, 1X/DAY
     Route: 048
  8. LOSARTAN. [Concomitant]
     Active Substance: LOSARTAN
     Dosage: 100MG  1X/DAY
     Route: 048
  9. TRAJENTA [Concomitant]
     Active Substance: LINAGLIPTIN
     Dosage: 5MG ALTERNATE DAY
     Route: 048
  10. PLAQUENIL [Concomitant]
     Active Substance: HYDROXYCHLOROQUINE SULFATE
     Dosage: 400MG  DAILY (5 DAYS/WK)
     Route: 048
  11. PRAVASTATIN. [Concomitant]
     Active Substance: PRAVASTATIN
     Dosage: 40 MG, 1X/DAY
  12. PREDNISONE. [Concomitant]
     Active Substance: PREDNISONE
     Dosage: 50 MG, 1X/DAY FOR 14 DAYS, THEN TAPER
     Route: 048
  13. LEFLUNOMIDE. [Concomitant]
     Active Substance: LEFLUNOMIDE
     Dosage: 20 MG EVERY OTHER DAY
  14. METFORMIN [METFORMIN HYDROCHLORIDE] [Concomitant]
     Active Substance: METFORMIN HYDROCHLORIDE
     Dosage: 1000 MG, 1X/DAY
  15. METOPROLOL. [Concomitant]
     Active Substance: METOPROLOL
     Dosage: 50MG 2X/DAY
     Route: 048

REACTIONS (2)
  - Circulatory collapse [Recovered/Resolved]
  - Basal cell carcinoma [Unknown]

NARRATIVE: CASE EVENT DATE: 20201028
